FAERS Safety Report 4617018-6 (Version None)
Quarter: 2005Q1

REPORT INFORMATION
  Report Type: 
  Country: None (occurrence: None)
  Receive Date: 20050318
  Receipt Date: 20050308
  Transmission Date: 20050727
  Serious: Yes (Disabling)
  Sender: FDA-Public Use
  Company Number: HQWYE890708MAR05

PATIENT
  Age: 74 Year
  Sex: Male

DRUGS (10)
  1. CORDARONE [Suspect]
     Indication: ATRIAL FIBRILLATION
     Dosage: 200 MG 1X PER 1 DAY, ORAL
     Route: 048
     Dates: start: 20041210, end: 20050201
  2. CORDARONE [Suspect]
     Indication: ATRIAL FLUTTER
     Dosage: 200 MG 1X PER 1 DAY, ORAL
     Route: 048
     Dates: start: 20041210, end: 20050201
  3. CORDARONE [Suspect]
     Dosage: 200 MG 1X PER 1 DAY, ORAL
     Route: 048
     Dates: start: 20050201, end: 20050201
  4. CORDARONE [Suspect]
     Dosage: 200 MG 1X PER 1 DAY, ORAL
     Route: 048
     Dates: start: 20050201
  5. ISOTEN (BISOPROLOL, TABLET) [Suspect]
     Dosage: 2.5 MG (1.255 MG QD), ORAL
     Route: 048
     Dates: start: 20050101, end: 20050219
  6. PAROXETINE HCL [Suspect]
     Dosage: 20 MG 1X PER 1 DAY, ORAL
     Route: 048
     Dates: start: 19950101, end: 20050201
  7. COVERSYL             (PERINDOPRIL) [Concomitant]
  8. SINTROM [Concomitant]
  9. VITAMINS WITH MINERALS [Concomitant]
  10. EQUANIL [Concomitant]

REACTIONS (4)
  - BLOOD FIBRINOGEN ABNORMAL [None]
  - C-REACTIVE PROTEIN INCREASED [None]
  - COLONIC OBSTRUCTION [None]
  - DRUG INTERACTION [None]
